FAERS Safety Report 15437679 (Version 2)
Quarter: 2019Q1

REPORT INFORMATION
  Report Type: Spontaneous
  Country: JP (occurrence: JP)
  Receive Date: 20180927
  Receipt Date: 20190123
  Transmission Date: 20190417
  Serious: Yes (Other)
  Sender: FDA-Public Use
  Company Number: PHJP2018JP016753

PATIENT
  Age: 24 Year
  Sex: Male

DRUGS (1)
  1. VOTRIENT [Suspect]
     Active Substance: PAZOPANIB HYDROCHLORIDE
     Indication: SYNOVIAL SARCOMA METASTATIC
     Dosage: UNK
     Route: 048

REACTIONS (4)
  - Appendicitis [Unknown]
  - Pneumothorax [Unknown]
  - Synovial sarcoma metastatic [Unknown]
  - Malignant neoplasm progression [Unknown]
